FAERS Safety Report 8760629 (Version 2)
Quarter: 2012Q4

REPORT INFORMATION
  Report Type: Spontaneous
  Country: US (occurrence: None)
  Receive Date: 20120821
  Receipt Date: 20120906
  Transmission Date: 20130627
  Serious: Yes (Other)
  Sender: FDA-Public Use
  Company Number: JPI-P-023819

PATIENT
  Age: 74 Year
  Sex: Male

DRUGS (3)
  1. XYREM [Suspect]
     Indication: SLEEP APNEA
     Route: 048
     Dates: start: 20030725
  2. XYREM [Suspect]
     Indication: SLEEP APNEA
     Dosage: (UNSPECIFIED DOSE CHANGE), Oral
     Route: 048
  3. XYREM [Suspect]
     Indication: SLEEP APNEA
     Route: 048

REACTIONS (1)
  - B-cell lymphoma [None]
